FAERS Safety Report 4774448-X (Version None)
Quarter: 2005Q3

REPORT INFORMATION
  Report Type: 
  Country: None (occurrence: None)
  Receive Date: 20050919
  Receipt Date: 20050919
  Transmission Date: 20060218
  Serious: Yes (Other)
  Sender: FDA-Public Use
  Company Number: None

PATIENT
  Sex: Male
  Weight: 90.7194 kg

DRUGS (9)
  1. NIASPAN [Suspect]
     Indication: HYPERLIPIDAEMIA
     Dosage: 1 PO QHS
     Route: 048
  2. CARDURA [Concomitant]
  3. WELCHOL [Concomitant]
  4. ZETIA [Concomitant]
  5. PLAVIX [Concomitant]
  6. PRILOSEC OTC [Concomitant]
  7. TOPROL-XL [Concomitant]
  8. DEMADEX [Concomitant]
  9. LOTREL [Concomitant]

REACTIONS (2)
  - RASH ERYTHEMATOUS [None]
  - RASH MACULO-PAPULAR [None]
